FAERS Safety Report 5045600-3 (Version None)
Quarter: 2006Q3

REPORT INFORMATION
  Report Type: 
  Country: None (occurrence: None)
  Receive Date: 20060707
  Receipt Date: 20060626
  Transmission Date: 20061208
  Serious: Yes (Hospitalization)
  Sender: FDA-Public Use
  Company Number: FR-ROCHE-453595

PATIENT
  Age: 3 Year
  Sex: Male
  Weight: 15 kg

DRUGS (10)
  1. ROCEPHIN [Suspect]
     Indication: DRUG USE FOR UNKNOWN INDICATION
     Dosage: FORM REPORTED AS INJECTABLE SOLUTION.
     Route: 042
     Dates: start: 20060519, end: 20060524
  2. MEDIALIPIDE [Suspect]
     Indication: PARENTERAL NUTRITION
     Dosage: FORM REPORTED AS INJECTABLE SOLUTION.
     Route: 042
     Dates: start: 20060423
  3. PRIMENE [Concomitant]
     Indication: PARENTERAL NUTRITION
  4. UNSPECIFIED DRUG [Concomitant]
     Indication: PARENTERAL NUTRITION
     Dosage: DRUG REPORTED AS HPV (VITAMINE).
  5. NONAN [Concomitant]
     Indication: PARENTERAL NUTRITION
     Dosage: GENERIC REPORTED AS OLIGO-ELEMENTS.
  6. MAG 2 [Concomitant]
     Indication: PARENTERAL NUTRITION
  7. PHOCYTAN [Concomitant]
     Indication: PARENTERAL NUTRITION
  8. CALCIUM GLUCONATE [Concomitant]
     Indication: PARENTERAL NUTRITION
  9. RANIPLEX [Concomitant]
     Dates: start: 20060415
  10. MOPRAL [Concomitant]
     Dates: start: 20060415

REACTIONS (2)
  - CHOLELITHIASIS [None]
  - PANCREATITIS [None]
